FAERS Safety Report 5108573-0 (Version None)
Quarter: 2006Q3

REPORT INFORMATION
  Report Type: 
  Country: None (occurrence: None)
  Receive Date: 20060919
  Receipt Date: 20060821
  Transmission Date: 20061208
  Serious: Yes (Hospitalization)
  Sender: FDA-Public Use
  Company Number: CN-MERCK-0608CHN00020

PATIENT
  Age: 58 Year
  Sex: Female

DRUGS (3)
  1. HYZAAR [Suspect]
     Indication: HYPERTENSION
     Route: 065
     Dates: start: 20060728, end: 20060730
  2. ATENOLOL [Concomitant]
     Indication: HYPERTENSION
     Route: 065
     Dates: start: 20060208, end: 20060730
  3. HYDROCHLOROTHIAZIDE [Concomitant]
     Indication: HYPERTENSION
     Route: 065
     Dates: start: 20060728, end: 20060728

REACTIONS (1)
  - HYPERTENSION [None]
